FAERS Safety Report 6867954-5 (Version None)
Quarter: 2010Q3

REPORT INFORMATION
  Report Type: 
  Country: None (occurrence: None)
  Receive Date: 20100722
  Receipt Date: 20080508
  Transmission Date: 20110219
  Serious: No
  Sender: FDA-Public Use
  Company Number: US-PFIZER INC-2008040648

PATIENT
  Sex: Male

DRUGS (2)
  1. CHANTIX [Suspect]
  2. LIPITOR [Suspect]

REACTIONS (1)
  - RASH [None]
